FAERS Safety Report 17170788 (Version 1)
Quarter: 2019Q4

REPORT INFORMATION
  Report Type: Spontaneous
  Country: NL (occurrence: NL)
  Receive Date: 20191218
  Receipt Date: 20191218
  Transmission Date: 20200122
  Serious: Yes (Life-Threatening, Hospitalization)
  Sender: FDA-Public Use
  Company Number: NL-MYLANLABS-2019M1125754

PATIENT
  Age: 78 Year
  Sex: Male

DRUGS (2)
  1. TRANEXAMIC ACID. [Suspect]
     Active Substance: TRANEXAMIC ACID
     Indication: SPINAL ANAESTHESIA
     Dosage: AMPOULES
  2. BUPIVACAINE. [Suspect]
     Active Substance: BUPIVACAINE
     Indication: SPINAL ANAESTHESIA
     Dosage: AMPOULES

REACTIONS (9)
  - Wrong product administered [Unknown]
  - Muscular weakness [Recovering/Resolving]
  - Arrhythmia [Unknown]
  - Product label issue [Unknown]
  - Product monitoring error [Unknown]
  - Incorrect route of product administration [Unknown]
  - Myoclonus [Unknown]
  - Hypercapnia [Unknown]
  - Hypertension [Unknown]
